FAERS Safety Report 4391937-0 (Version None)
Quarter: 2004Q3

REPORT INFORMATION
  Report Type: 
  Country: None (occurrence: None)
  Receive Date: 20040701
  Receipt Date: 20040616
  Transmission Date: 20050211
  Serious: Yes (Other)
  Sender: FDA-Public Use
  Company Number: USA040670238

PATIENT
  Age: 74 Year
  Sex: Female
  Weight: 66 kg

DRUGS (1)
  1. HUMALOG [Suspect]
     Dosage: 30 U DAY
     Dates: start: 20010101

REACTIONS (8)
  - BLINDNESS UNILATERAL [None]
  - BLOOD GLUCOSE DECREASED [None]
  - BLOOD GLUCOSE INCREASED [None]
  - CORNEAL TRANSPLANT [None]
  - DEPRESSION [None]
  - DIABETES MELLITUS INSULIN-DEPENDENT [None]
  - EYE HAEMORRHAGE [None]
  - RETINAL DETACHMENT [None]
